FAERS Safety Report 18086828 (Version 2)
Quarter: 2020Q3

REPORT INFORMATION
  Report Type: Spontaneous
  Country: US (occurrence: US)
  Receive Date: 20200729
  Receipt Date: 20200730
  Transmission Date: 20201103
  Serious: No
  Sender: FDA-Public Use
  Company Number: US-PFIZER INC-2020287312

PATIENT
  Age: 66 Year
  Sex: Female

DRUGS (1)
  1. PREMPRO [Suspect]
     Active Substance: ESTROGENS, CONJUGATED\MEDROXYPROGESTERONE ACETATE
     Indication: PREMATURE MENOPAUSE
     Dosage: 1 DF, DAILY (0.3?1.5MG DOSE)
     Route: 048
     Dates: start: 2000

REACTIONS (1)
  - Benign breast neoplasm [Unknown]

NARRATIVE: CASE EVENT DATE: 2017
